FAERS Safety Report 4447997-1 (Version None)
Quarter: 2004Q3

REPORT INFORMATION
  Report Type: 
  Country: None (occurrence: None)
  Receive Date: 20040818
  Receipt Date: 20031128
  Transmission Date: 20050211
  Serious: Yes (Hospitalization)
  Sender: FDA-Public Use
  Company Number: 2003161768US

PATIENT
  Age: 45 Year
  Sex: Female

DRUGS (4)
  1. PANTOPRAZOLE SODIUM [Suspect]
     Indication: GASTROOESOPHAGEAL REFLUX DISEASE
     Dosage: 40 MG QD ORAL
     Route: 048
     Dates: start: 20030428, end: 20030501
  2. AZULFIDINE EN-TABS [Suspect]
  3. RANITIDINE [Concomitant]
  4. MORPHINE [Concomitant]

REACTIONS (1)
  - STEVENS-JOHNSON SYNDROME [None]
